FAERS Safety Report 5527450-4 (Version None)
Quarter: 2007Q4

REPORT INFORMATION
  Report Type: 
  Country: None (occurrence: None)
  Receive Date: 20071123
  Receipt Date: 20071114
  Transmission Date: 20080405
  Serious: Yes (Death)
  Sender: FDA-Public Use
  Company Number: 2007-03796

PATIENT
  Age: 79 Year
  Sex: Male

DRUGS (9)
  1. VELCADE [Suspect]
     Indication: DRUG USE FOR UNKNOWN INDICATION
     Dates: start: 20061025, end: 20061025
  2. ENABLEX [Concomitant]
  3. FLAGYL [Concomitant]
  4. FOLIC ACID [Concomitant]
  5. HUMALOG [Concomitant]
  6. LEXAPRO [Concomitant]
  7. LIPITOR [Concomitant]
  8. OMEPRAZOLE [Concomitant]
  9. TRAVATAN [Concomitant]

REACTIONS (1)
  - DISEASE PROGRESSION [None]
